FAERS Safety Report 11898670 (Version 1)
Quarter: 2016Q1

REPORT INFORMATION
  Report Type: Spontaneous
  Country: US (occurrence: None)
  Receive Date: 20160107
  Receipt Date: 20160107
  Transmission Date: 20160526
  Serious: Yes (Hospitalization)
  Sender: FDA-Public Use
  Company Number: None

PATIENT
  Sex: Male

DRUGS (2)
  1. CAPECITABINE 150MG TEVA [Suspect]
     Active Substance: CAPECITABINE
     Indication: RECTAL CANCER
     Dosage: SAME MED DIFFERENT STRENGTH   BID X 14D ON 7 D OFF
     Route: 048
     Dates: start: 20151217
  2. CAPECITABINE 500 MG TEVA [Suspect]
     Active Substance: CAPECITABINE
     Indication: RECTAL CANCER
     Dosage: 2300 MG TOTAL BID X 14 D ON 7 D OFF
     Route: 048
     Dates: start: 20151217

REACTIONS (1)
  - Chest pain [None]
